FAERS Safety Report 9660977 (Version 2)
Quarter: 2013Q4

REPORT INFORMATION
  Report Type: Spontaneous
  Country: BR (occurrence: BR)
  Receive Date: 20131031
  Receipt Date: 20131106
  Transmission Date: 20140711
  Serious: Yes (Other)
  Sender: FDA-Public Use
  Company Number: BR-PFIZER INC-2013308352

PATIENT
  Sex: Male

DRUGS (3)
  1. SUTENT [Suspect]
     Indication: RENAL CELL CARCINOMA
     Dosage: 50 MG, CYCLIC, 4 WEEKS ON 2 WEEKS OFF
     Dates: start: 20121122
  2. SUTENT [Suspect]
     Dosage: 25 MG, CYCLIC, 4 WEEKS ON 2 WEEKS OFF
     Dates: start: 2013, end: 2013
  3. SUTENT [Suspect]
     Dosage: 50 MG, CYCLIC, 4 WEEKS ON 2 WEEKS OFF
     Dates: start: 2013, end: 20131005

REACTIONS (8)
  - Paralysis [Unknown]
  - Delirium [Not Recovered/Not Resolved]
  - Nervousness [Not Recovered/Not Resolved]
  - Sleep disorder [Unknown]
  - Confusional state [Unknown]
  - Disease progression [Unknown]
  - Renal cell carcinoma [Unknown]
  - Feeling abnormal [Unknown]
